FAERS Safety Report 9521588 (Version 1)
Quarter: 2013Q3

REPORT INFORMATION
  Report Type: Spontaneous
  Country: US (occurrence: None)
  Receive Date: 20130911
  Receipt Date: 20130911
  Transmission Date: 20140515
  Serious: No
  Sender: FDA-Public Use
  Company Number: AEUSA201300159

PATIENT
  Sex: Male

DRUGS (5)
  1. GAMMAKED [Suspect]
     Indication: MYASTHENIA GRAVIS
     Route: 042
  2. PREDNISONE [Concomitant]
  3. CLONAZEPAM [Concomitant]
  4. FIORICET [Concomitant]
  5. CYMBALTA [Concomitant]

REACTIONS (4)
  - Infusion related reaction [None]
  - Refusal of treatment by patient [None]
  - Pain [None]
  - Tremor [None]
